FAERS Safety Report 16740152 (Version 5)
Quarter: 2019Q4

REPORT INFORMATION
  Report Type: Report from Study
  Country: None (occurrence: IE)
  Receive Date: 20190826
  Receipt Date: 20191112
  Transmission Date: 20200122
  Serious: Yes (Hospitalization)
  Sender: FDA-Public Use
  Company Number: IE-ABBVIE-19K-229-2900722-00

PATIENT
  Sex: Male

DRUGS (7)
  1. HUMIRA [Suspect]
     Active Substance: ADALIMUMAB
     Dosage: DOSE INCREASED?TUESDAY
     Route: 058
     Dates: start: 20190818, end: 201908
  2. HUMIRA [Suspect]
     Active Substance: ADALIMUMAB
     Dosage: CHANGED TO THURSDAY
     Route: 058
     Dates: start: 201910
  3. HUMIRA [Suspect]
     Active Substance: ADALIMUMAB
     Route: 058
     Dates: start: 2018
  4. HUMIRA [Suspect]
     Active Substance: ADALIMUMAB
     Dosage: DAY 15
     Route: 058
     Dates: start: 20180911, end: 20180911
  5. HUMIRA [Suspect]
     Active Substance: ADALIMUMAB
     Indication: COLITIS ULCERATIVE
     Dosage: DAY 1
     Route: 058
     Dates: start: 20180828, end: 20180828
  6. HUMIRA [Suspect]
     Active Substance: ADALIMUMAB
     Dosage: DOSE INCREASED?TUESDAY
     Route: 058
     Dates: start: 201908, end: 201910
  7. HUMIRA [Suspect]
     Active Substance: ADALIMUMAB
     Dosage: CHANGED TO THURSDAY
     Route: 058
     Dates: start: 201908, end: 201910

REACTIONS (3)
  - Cellulitis [Recovered/Resolved]
  - Colitis ulcerative [Recovered/Resolved]
  - Immunodeficiency [Recovered/Resolved]

NARRATIVE: CASE EVENT DATE: 2019
